FAERS Safety Report 4992090-2 (Version None)
Quarter: 2006Q2

REPORT INFORMATION
  Report Type: 
  Country: None (occurrence: None)
  Receive Date: 20060504
  Receipt Date: 20051006
  Transmission Date: 20061013
  Serious: Yes (Hospitalization, Other)
  Sender: FDA-Public Use
  Company Number: US-MERCK-0510USA04872

PATIENT
  Age: 59 Year
  Sex: Male
  Weight: 101 kg

DRUGS (1)
  1. VIOXX [Suspect]
     Indication: BACK PAIN
     Route: 048
     Dates: start: 19990101, end: 20030101

REACTIONS (21)
  - ANGINA PECTORIS [None]
  - ANGINA UNSTABLE [None]
  - ARTHRALGIA [None]
  - BURSITIS [None]
  - CELLULITIS [None]
  - CHEST PAIN [None]
  - CORONARY ARTERY DISEASE [None]
  - CORONARY ARTERY RESTENOSIS [None]
  - DIABETIC NEUROPATHY [None]
  - GOUT [None]
  - INTERMITTENT CLAUDICATION [None]
  - INTERVERTEBRAL DISC PROTRUSION [None]
  - LUMBAR SPINAL STENOSIS [None]
  - OSTEOARTHRITIS [None]
  - PAIN IN EXTREMITY [None]
  - POLYARTHRITIS [None]
  - PROCEDURAL HYPERTENSION [None]
  - RENAL FAILURE [None]
  - SYNCOPE [None]
  - SYNOVITIS [None]
  - TENDONITIS [None]
